FAERS Safety Report 5342277-4 (Version None)
Quarter: 2007Q2

REPORT INFORMATION
  Report Type: 
  Country: None (occurrence: None)
  Receive Date: 20070601
  Receipt Date: 20070523
  Transmission Date: 20071010
  Serious: Yes (Hospitalization)
  Sender: FDA-Public Use
  Company Number: JP-JNJFOC-20070202256

PATIENT
  Sex: Female
  Weight: 52 kg

DRUGS (24)
  1. INFLIXIMAB [Suspect]
     Route: 042
  2. INFLIXIMAB [Suspect]
     Route: 042
  3. INFLIXIMAB [Suspect]
     Route: 042
  4. INFLIXIMAB [Suspect]
     Indication: PUSTULAR PSORIASIS
     Route: 042
  5. PREDONINE [Suspect]
     Route: 048
  6. PREDONINE [Suspect]
     Route: 048
  7. PREDONINE [Suspect]
     Indication: PUSTULAR PSORIASIS
     Route: 048
  8. ATARAX [Concomitant]
     Indication: PUSTULAR PSORIASIS
     Route: 048
  9. FOSAMAX [Concomitant]
     Route: 048
  10. FOSAMAX [Concomitant]
     Indication: OSTEOPOROSIS
     Route: 048
  11. LOCHOL [Concomitant]
     Indication: HYPERLIPIDAEMIA
     Route: 048
  12. NIPOLAZIN [Concomitant]
     Indication: PUSTULAR PSORIASIS
     Route: 048
  13. CONSTAN [Concomitant]
     Route: 048
  14. CONSTAN [Concomitant]
     Indication: INSOMNIA
     Dosage: START DATE BEFORE 04-OCT-06
     Route: 048
  15. SELBEX [Concomitant]
     Indication: GASTROINTESTINAL DISORDER
     Route: 048
  16. AMLODIN [Concomitant]
     Route: 048
  17. AMLODIN [Concomitant]
     Indication: HYPERTENSION
     Dosage: START DATE BEFORE 04-OCT-06
     Route: 048
  18. ALESION [Concomitant]
     Indication: PUSTULAR PSORIASIS
     Route: 048
  19. ACECOL [Concomitant]
     Indication: HYPERTENSION
     Route: 048
  20. TAKEPRON OD [Concomitant]
     Indication: GASTROINTESTINAL DISORDER
     Route: 048
  21. LENDORMIN D [Concomitant]
     Indication: INSOMNIA
     Route: 048
  22. NERISONA [Concomitant]
     Dosage: ADEQUATE DOSE
     Route: 061
  23. NERISONA [Concomitant]
     Indication: PUSTULAR PSORIASIS
     Dosage: START DATE BEFORE 04-OCT-06, ADEQUATE DOSE
     Route: 061
  24. AZUNOL [Concomitant]
     Indication: PUSTULAR PSORIASIS
     Dosage: ADEQUATE DOSE
     Route: 061

REACTIONS (5)
  - HERPES ZOSTER [None]
  - INTERVERTEBRAL DISCITIS [None]
  - PLEURAL EFFUSION [None]
  - SPONDYLITIS [None]
  - STAPHYLOCOCCAL INFECTION [None]
